FAERS Safety Report 19732166 (Version 1)
Quarter: 2021Q3

REPORT INFORMATION
  Report Type: Spontaneous
  Country: US (occurrence: US)
  Receive Date: 20210820
  Receipt Date: 20210820
  Transmission Date: 20211014
  Serious: Yes (Other)
  Sender: FDA-Public Use
  Company Number: NVSC2021US182010

PATIENT
  Age: 5 Year
  Sex: Male

DRUGS (9)
  1. PEG/L?ASPARAGINASE [Suspect]
     Active Substance: PEGASPARGASE
     Indication: T-CELL TYPE ACUTE LEUKAEMIA
     Dosage: UNK UNK, UNKNOWN
     Route: 065
  2. NELARABINE [Suspect]
     Active Substance: NELARABINE
     Indication: T-CELL TYPE ACUTE LEUKAEMIA
     Dosage: UNK UNK, UNKNOWN
     Route: 065
  3. METHOTREXATE SODIUM. [Suspect]
     Active Substance: METHOTREXATE SODIUM
     Indication: T-CELL TYPE ACUTE LEUKAEMIA
     Dosage: UNK UNK, UNKNOWN
     Route: 042
  4. VINCRISTINE [Suspect]
     Active Substance: VINCRISTINE
     Indication: T-CELL TYPE ACUTE LEUKAEMIA
     Dosage: UNK UNK, QMO
     Route: 065
  5. 6?MERCAPTOPURINE MONOHYDRATE [Suspect]
     Active Substance: MERCAPTOPURINE
     Indication: PRODUCT USED FOR UNKNOWN INDICATION
     Dosage: UNK UNK, QD
     Route: 048
  6. PREDNISONE. [Suspect]
     Active Substance: PREDNISONE
     Indication: T-CELL TYPE ACUTE LEUKAEMIA
     Dosage: UNK UNK, UNKNOWN (TWO WEEK COURSE OF PO 40 MG/M2)
     Route: 048
  7. VINBLASTINE [Suspect]
     Active Substance: VINBLASTINE
     Indication: T-CELL TYPE ACUTE LEUKAEMIA
     Dosage: UNK UNK, QW
     Route: 065
  8. METHOTREXATE SODIUM. [Suspect]
     Active Substance: METHOTREXATE SODIUM
     Dosage: UNK UNK, QW (IV/PO/IT)
     Route: 048
  9. DOXORUBICIN [Suspect]
     Active Substance: DOXORUBICIN
     Indication: T-CELL TYPE ACUTE LEUKAEMIA
     Dosage: UNK UNK, UNKNOWN
     Route: 065

REACTIONS (4)
  - Langerhans^ cell histiocytosis [Unknown]
  - Skin lesion [Unknown]
  - Drug ineffective [Unknown]
  - Bone marrow disorder [Unknown]
